FAERS Safety Report 20819841 (Version 1)
Quarter: 2022Q2

REPORT INFORMATION
  Report Type: Spontaneous
  Country: US (occurrence: None)
  Receive Date: 20220512
  Receipt Date: 20220512
  Transmission Date: 20220720
  Serious: Yes (Hospitalization)
  Sender: FDA-Public Use
  Company Number: US-ROCHE-3092492

PATIENT
  Sex: Female

DRUGS (1)
  1. VALCYTE [Suspect]
     Active Substance: VALGANCICLOVIR HYDROCHLORIDE
     Indication: Herpes virus infection
     Dosage: (2) 450 MG TABLETS ;ONGOING: NO
     Route: 048

REACTIONS (2)
  - Syncope [Unknown]
  - Off label use [Unknown]
